FAERS Safety Report 10077343 (Version 2)
Quarter: 2014Q2

REPORT INFORMATION
  Report Type: Spontaneous
  Country: US (occurrence: US)
  Receive Date: 20140414
  Receipt Date: 20140414
  Transmission Date: 20141212
  Serious: No
  Sender: FDA-Public Use
  Company Number: US-BANPHARM-20131375

PATIENT
  Age: 69 Year
  Sex: Female
  Weight: 52.16 kg

DRUGS (3)
  1. ALEVE LIQUID GELS 220 MG [Suspect]
     Indication: BACK PAIN
     Dosage: 1 DF, Q12H,
     Route: 048
     Dates: start: 20130513, end: 20130521
  2. OMEGA 3 [Concomitant]
  3. CALCIUM [Concomitant]

REACTIONS (3)
  - Vision blurred [Recovered/Resolved]
  - Drug ineffective [Unknown]
  - Abdominal discomfort [Recovered/Resolved]
